FAERS Safety Report 7323488-5 (Version None)
Quarter: 2011Q1

REPORT INFORMATION
  Report Type: 
  Country: None (occurrence: None)
  Receive Date: 20110301
  Receipt Date: 20110224
  Transmission Date: 20110831
  Serious: Yes (Hospitalization, Disabling)
  Sender: FDA-Public Use
  Company Number: BR-ROCHE-741189

PATIENT
  Sex: Female
  Weight: 86 kg

DRUGS (11)
  1. RIVOTRIL [Suspect]
     Route: 065
  2. RIVOTRIL [Suspect]
     Route: 065
  3. TEGRETOL [Concomitant]
  4. RIVOTRIL [Suspect]
     Indication: BIPOLAR DISORDER
     Dosage: HALF TAB WITH BREAKFAST, HALF TAB WITH LUNCH AND 1 TAB AT NIGHT
     Route: 065
     Dates: start: 19950101
  5. RIVOTRIL [Suspect]
     Route: 065
  6. RISPERDONE [Concomitant]
  7. RIVOTRIL [Suspect]
     Route: 065
  8. TEGRETOL [Concomitant]
  9. RISPERDONE [Concomitant]
  10. TEGRETOL [Concomitant]
  11. RISPERDONE [Concomitant]

REACTIONS (5)
  - EAR PAIN [None]
  - EAR INFECTION [None]
  - DEAFNESS [None]
  - NERVOUSNESS [None]
  - PHARYNGITIS [None]
